FAERS Safety Report 14492647 (Version 1)
Quarter: 2018Q1

REPORT INFORMATION
  Report Type: Spontaneous
  Country: US (occurrence: US)
  Receive Date: 20180206
  Receipt Date: 20180206
  Transmission Date: 20180509
  Serious: No
  Sender: FDA-Public Use
  Company Number: US-JNJFOC-20180107731

PATIENT
  Age: 87 Year
  Sex: Male
  Weight: 76.2 kg

DRUGS (2)
  1. ZYRTEC [Suspect]
     Active Substance: CETIRIZINE HYDROCHLORIDE
     Indication: PRODUCT USED FOR UNKNOWN INDICATION
     Dosage: BETWEEN 0200H TO 0600H
     Route: 065
     Dates: start: 20180105
  2. ZYRTEC [Suspect]
     Active Substance: CETIRIZINE HYDROCHLORIDE
     Indication: PRODUCT USED FOR UNKNOWN INDICATION
     Route: 065

REACTIONS (4)
  - Somnolence [Unknown]
  - Wrong drug administered [Unknown]
  - Fatigue [Unknown]
  - Overdose [Unknown]

NARRATIVE: CASE EVENT DATE: 20180105
